FAERS Safety Report 9092798 (Version 1)
Quarter: 2013Q1

REPORT INFORMATION
  Report Type: Spontaneous
  Country: US (occurrence: None)
  Receive Date: 20130213
  Receipt Date: 20130213
  Transmission Date: 20140127
  Serious: Yes (Other)
  Sender: FDA-Public Use
  Company Number: None

PATIENT
  Age: 64 Year
  Sex: Female
  Weight: 77.11 kg

DRUGS (1)
  1. LEVOFLOXACIN [Suspect]
     Indication: ORAL SURGERY
     Route: 048

REACTIONS (3)
  - Musculoskeletal pain [None]
  - Swelling [None]
  - Musculoskeletal stiffness [None]
